FAERS Safety Report 9345943 (Version 1)
Quarter: 2013Q2

REPORT INFORMATION
  Report Type: Spontaneous
  Country: US (occurrence: US)
  Receive Date: 20130613
  Receipt Date: 20130613
  Transmission Date: 20140414
  Serious: Yes (Other)
  Sender: FDA-Public Use
  Company Number: US-NAPPMUNDI-USA-2013-0103159

PATIENT
  Sex: Female

DRUGS (1)
  1. SENOKOT-S [Suspect]
     Indication: PRODUCT USED FOR UNKNOWN INDICATION
     Dosage: 4 TABLET, DAILY
     Route: 048

REACTIONS (1)
  - Gastric ulcer [Unknown]
